FAERS Safety Report 9607628 (Version 1)
Quarter: 2013Q4

REPORT INFORMATION
  Report Type: Spontaneous
  Country: IT (occurrence: IT)
  Receive Date: 20131009
  Receipt Date: 20131009
  Transmission Date: 20140711
  Serious: Yes (Disabling)
  Sender: FDA-Public Use
  Company Number: PHHY2013IT112727

PATIENT
  Age: 72 Year
  Sex: Male

DRUGS (5)
  1. ZOMETA [Suspect]
     Indication: PROSTATE CANCER
     Dosage: 4 MG, MONTHLY
     Route: 042
     Dates: start: 20101201, end: 20130318
  2. SAFEDEX [Concomitant]
     Dosage: UNK UKN, UNK
     Dates: start: 2010
  3. OSSEOR [Concomitant]
     Dosage: UNK UKN, UNK
     Dates: start: 2010
  4. TRIATEC [Concomitant]
     Dosage: UNK UKN, UNK
     Dates: start: 1998
  5. DIURETICS [Concomitant]
     Dosage: UNK UKN, UNK

REACTIONS (2)
  - Osteonecrosis of jaw [Not Recovered/Not Resolved]
  - Exposed bone in jaw [Unknown]
